FAERS Safety Report 6713146-X (Version None)
Quarter: 2010Q2

REPORT INFORMATION
  Report Type: 
  Country: None (occurrence: None)
  Receive Date: 20100506
  Receipt Date: 20100422
  Transmission Date: 20101027
  Serious: Yes (Hospitalization)
  Sender: FDA-Public Use
  Company Number: PHHY2010JP07661

PATIENT
  Sex: Female
  Weight: 61 kg

DRUGS (28)
  1. ZOMETA [Suspect]
     Indication: METASTASES TO BONE
     Dosage: 4 MG, UNK
     Route: 042
     Dates: start: 20070710, end: 20091208
  2. ZOMETA [Suspect]
     Dosage: UNK
     Route: 042
     Dates: start: 20091013
  3. ZOMETA [Suspect]
     Dosage: UNK
     Route: 042
     Dates: start: 20091110
  4. XELODA [Suspect]
     Indication: BREAST CANCER
     Dosage: 2400 MG, UNK
     Route: 048
     Dates: start: 20090609
  5. XELODA [Suspect]
     Dosage: 1200 MG, UNK
     Route: 048
     Dates: end: 20091222
  6. TAKEPRON [Concomitant]
     Indication: GASTRITIS
     Dosage: 15 MG, UNK
     Route: 048
     Dates: start: 20090915
  7. FUROSEMIDE [Concomitant]
     Indication: LYMPHOEDEMA
     Dosage: 20 MG, UNK
     Route: 048
     Dates: start: 20070320, end: 20091026
  8. ALDACTONE [Concomitant]
     Indication: LYMPHOEDEMA
     Dosage: 25 MG, UNK
     Route: 048
     Dates: start: 20070320
  9. ALDACTONE [Concomitant]
     Dosage: 25 MG, UNK
     Route: 048
  10. LASIX [Concomitant]
     Indication: LYMPHOEDEMA
     Dosage: 40 MG, UNK
     Route: 048
     Dates: start: 20091116
  11. WARFARIN [Concomitant]
     Indication: PROPHYLAXIS
     Dosage: 1 MG, UNK
     Route: 048
     Dates: start: 20090804
  12. ENDOXAN [Concomitant]
     Indication: BREAST CANCER
     Dosage: 100 MG, UNK
     Route: 048
     Dates: start: 20090609
  13. ENDOXAN [Concomitant]
     Dosage: 50 MG, UNK
     Route: 048
     Dates: end: 20091226
  14. HYPEN [Concomitant]
     Indication: BREAST CANCER
     Dosage: 400 MG, UNK
     Route: 048
     Dates: start: 20090818, end: 20091109
  15. VOLTAREN-XR [Concomitant]
     Indication: PAIN
     Dosage: 75 MG, UNK
     Route: 048
     Dates: start: 20091110, end: 20091230
  16. CALSIL [Concomitant]
     Indication: PAIN
     Dosage: 1200 MG, UNK
     Route: 048
     Dates: start: 20091231
  17. KINEDAK [Concomitant]
     Dosage: 150 MG, UNK
     Route: 048
     Dates: start: 20090316
  18. MEVALOTIN [Concomitant]
     Indication: HYPERLIPIDAEMIA
     Dosage: 10 MG, UNK
     Route: 048
     Dates: start: 20080916
  19. MEVALOTIN [Concomitant]
     Dosage: 5 MG, UNK
     Route: 048
  20. HUMALOG [Concomitant]
     Indication: DIABETES MELLITUS
     Dosage: 30 DF, UNK
     Route: 058
     Dates: start: 20090304
  21. HUMALOG [Concomitant]
     Dosage: 46 DF, UNK
     Route: 058
  22. HUMALOG [Concomitant]
     Dosage: 46 DF, UNK
     Route: 058
  23. HUMALOG [Concomitant]
     Dosage: 40 DF, UNK
     Route: 058
  24. HUMALOG [Concomitant]
     Dosage: 38 DF, UNK
     Route: 058
  25. HUMALOG [Concomitant]
     Dosage: 26 DF, UNK
     Route: 058
  26. HUMALOG [Concomitant]
     Dosage: 28 DF, UNK
     Route: 058
  27. HUMALOG [Concomitant]
     Dosage: 34 DF, UNK
     Route: 058
  28. HUMALOG [Concomitant]
     Dosage: 40 DF, UNK
     Route: 058

REACTIONS (15)
  - BLOOD CREATININE INCREASED [None]
  - BLOOD UREA INCREASED [None]
  - CARDIAC FAILURE [None]
  - GENERALISED OEDEMA [None]
  - INFECTION [None]
  - LYMPHOCYTE COUNT DECREASED [None]
  - METABOLIC ACIDOSIS [None]
  - MONOCYTE COUNT INCREASED [None]
  - NEPHROGENIC ANAEMIA [None]
  - PALMAR-PLANTAR ERYTHRODYSAESTHESIA SYNDROME [None]
  - PLEURAL EFFUSION [None]
  - RENAL IMPAIRMENT [None]
  - RESPIRATORY DISORDER [None]
  - URINE OUTPUT DECREASED [None]
  - WEIGHT DECREASED [None]
